FAERS Safety Report 7418647-7 (Version None)
Quarter: 2011Q2

REPORT INFORMATION
  Report Type: 
  Country: None (occurrence: None)
  Receive Date: 20110415
  Receipt Date: 20110222
  Transmission Date: 20111010
  Serious: Yes (Hospitalization, Other)
  Sender: FDA-Public Use
  Company Number: US-BAYER-2010-006125

PATIENT
  Age: 25 Year
  Sex: Female
  Weight: 53.968 kg

DRUGS (19)
  1. YAZ [Suspect]
     Indication: CONTRACEPTION
     Dosage: UNK
     Dates: start: 20080627, end: 20091101
  2. YAZ [Suspect]
     Dosage: UNK
     Dates: start: 20091005, end: 20091102
  3. ROCURONIUM [Concomitant]
     Dosage: 30 MG, UNK
     Route: 042
     Dates: start: 20081114, end: 20081114
  4. YAZ [Suspect]
     Dosage: UNK
     Dates: start: 20081113, end: 20081129
  5. FENTANYL [Concomitant]
     Dosage: 250 UNK, UNK
     Route: 042
     Dates: start: 20081114, end: 20081114
  6. MOTRIN [Concomitant]
  7. TYLENOL SINUNS [Concomitant]
  8. YAZ [Suspect]
     Dosage: UNK
     Dates: start: 20090628, end: 20090726
  9. HYDROCHLORIDE [Concomitant]
  10. MORPHINE [Concomitant]
     Dosage: 2 MG, UNK
     Route: 042
     Dates: start: 20081114, end: 20081114
  11. MIDAZOLAM HCL [Concomitant]
     Dosage: 2 MG, UNK
     Route: 042
     Dates: start: 20081114, end: 20081114
  12. SEVOFLURANE [Concomitant]
     Dosage: 5 MG, UNK
     Route: 042
     Dates: start: 20081114, end: 20081114
  13. ADVIL LIQUI-GELS [Concomitant]
  14. MEPERIDINE [Concomitant]
     Indication: PAIN
     Dosage: 125 MG, UNK
     Route: 042
     Dates: start: 20081114, end: 20081114
  15. ANCEF [Concomitant]
  16. PROVENTAL [Concomitant]
     Dosage: UNK
     Dates: start: 20081114
  17. VICODIN [Concomitant]
     Dosage: UNK
     Dates: start: 20081114
  18. REGLAN [Concomitant]
  19. PROPOFOL [Concomitant]
     Dosage: 150 MG, UNK
     Route: 042
     Dates: start: 20081114, end: 20081114

REACTIONS (7)
  - CHOLELITHIASIS [None]
  - PAIN [None]
  - INJURY [None]
  - ANXIETY [None]
  - ABDOMINAL PAIN [None]
  - EMOTIONAL DISTRESS [None]
  - CHOLECYSTITIS [None]
